FAERS Safety Report 11318349 (Version 1)
Quarter: 2015Q3

REPORT INFORMATION
  Report Type: Spontaneous
  Country: US (occurrence: US)
  Receive Date: 20150728
  Receipt Date: 20150728
  Transmission Date: 20151125
  Serious: Yes (Hospitalization)
  Sender: FDA-Public Use
  Company Number: US-BAUSCH-BL-2015-018090

PATIENT
  Age: 67 Year
  Sex: Male
  Weight: 81 kg

DRUGS (7)
  1. CARDIZEM [Suspect]
     Active Substance: DILTIAZEM HYDROCHLORIDE
     Indication: BLOOD PRESSURE MEASUREMENT
     Route: 065
  2. CARDIZEM [Suspect]
     Active Substance: DILTIAZEM HYDROCHLORIDE
     Route: 065
  3. LOSARTAN. [Concomitant]
     Active Substance: LOSARTAN
     Indication: BLOOD PRESSURE MEASUREMENT
  4. CARDIZEM [Suspect]
     Active Substance: DILTIAZEM HYDROCHLORIDE
     Route: 065
  5. TIKOSYN [Suspect]
     Active Substance: DOFETILIDE
     Route: 065
     Dates: start: 20150522
  6. TIKOSYN [Suspect]
     Active Substance: DOFETILIDE
     Indication: ARRHYTHMIA
     Route: 065
     Dates: start: 20150521
  7. METOPROLOL [Suspect]
     Active Substance: METOPROLOL
     Indication: ARRHYTHMIA
     Route: 065

REACTIONS (4)
  - Drug ineffective [Unknown]
  - Heart rate increased [Unknown]
  - Weight decreased [Unknown]
  - Arrhythmia [Unknown]
